FAERS Safety Report 5252379-9 (Version None)
Quarter: 2007Q1

REPORT INFORMATION
  Report Type: 
  Country: None (occurrence: None)
  Receive Date: 20070301
  Receipt Date: 20060918
  Transmission Date: 20070707
  Serious: Yes (Death)
  Sender: FDA-Public Use
  Company Number: US-BRISTOL-MYERS SQUIBB COMPANY-13513122

PATIENT
  Sex: Female

DRUGS (4)
  1. TAXOL [Suspect]
  2. PARAPLATIN [Suspect]
  3. MEGACE [Suspect]
  4. COUMADIN [Suspect]

REACTIONS (1)
  - MALIGNANT NEOPLASM PROGRESSION [None]
